FAERS Safety Report 24450528 (Version 1)
Quarter: 2024Q4

REPORT INFORMATION
  Report Type: Spontaneous
  Country: US (occurrence: None)
  Receive Date: 20241016
  Receipt Date: 20241016
  Transmission Date: 20250115
  Serious: No
  Sender: Public
  Company Number: None

PATIENT
  Age: 40 Year
  Sex: Male

DRUGS (1)
  1. PAXLOVID [Suspect]
     Active Substance: NIRMATRELVIR\RITONAVIR

REACTIONS (13)
  - Rash [None]
  - Urticaria [None]
  - Skin exfoliation [None]
  - Mouth ulceration [None]
  - Dysphagia [None]
  - Throat tightness [None]
  - Blister [None]
  - Genital swelling [None]
  - Mouth swelling [None]
  - Lip swelling [None]
  - Swollen tongue [None]
  - Swelling face [None]
  - Pharyngeal swelling [None]
